FAERS Safety Report 17532457 (Version 1)
Quarter: 2020Q1

REPORT INFORMATION
  Report Type: Report from Study
  Country: CA (occurrence: CA)
  Receive Date: 20200312
  Receipt Date: 20200312
  Transmission Date: 20200409
  Serious: Yes (Other)
  Sender: FDA-Public Use
  Company Number: CA-JNJFOC-20200300062

PATIENT
  Age: 37 Year
  Sex: Male

DRUGS (1)
  1. REMICADE [Suspect]
     Active Substance: INFLIXIMAB
     Indication: CROHN^S DISEASE
     Dosage: LAST INFUSION ON 23-JAN-2020?RECENT INFUSION (75TH) ON 28-FEB-2020
     Route: 042

REACTIONS (1)
  - Gastroenteritis salmonella [Unknown]

NARRATIVE: CASE EVENT DATE: 20200201
